FAERS Safety Report 7580480-3 (Version None)
Quarter: 2011Q2

REPORT INFORMATION
  Report Type: 
  Country: None (occurrence: None)
  Receive Date: 20110629
  Receipt Date: 20110422
  Transmission Date: 20111010
  Serious: Yes (Hospitalization, Congenital Anomaly)
  Sender: FDA-Public Use
  Company Number: A0924770A

PATIENT
  Sex: Female

DRUGS (4)
  1. HUMULIN N [Concomitant]
     Route: 064
  2. PAXIL CR [Suspect]
     Indication: DEPRESSION
     Dosage: 25MG TWICE PER DAY
     Route: 064
     Dates: start: 20020610, end: 20050201
  3. AUGMENTIN '125' [Concomitant]
     Route: 064
  4. PRENATAL VITAMINS [Concomitant]
     Route: 064

REACTIONS (5)
  - POLYHYDRAMNIOS [None]
  - RESPIRATORY FAILURE [None]
  - CARDIAC MURMUR [None]
  - DRUG EXPOSURE DURING PREGNANCY [None]
  - ASTHMA [None]
